FAERS Safety Report 6233683-4 (Version None)
Quarter: 2009Q2

REPORT INFORMATION
  Report Type: 
  Country: None (occurrence: None)
  Receive Date: 20090617
  Receipt Date: 20090611
  Transmission Date: 20091009
  Serious: Yes (Other)
  Sender: FDA-Public Use
  Company Number: US-ABBOTT-09P-163-0577577-00

PATIENT
  Age: 24 Year
  Sex: Female

DRUGS (4)
  1. KALETRA [Suspect]
     Indication: ANTIRETROVIRAL THERAPY
     Route: 048
  2. RETROVIR [Suspect]
     Indication: ANTIRETROVIRAL THERAPY
     Route: 048
  3. EPIVIR [Suspect]
     Indication: ANTIRETROVIRAL THERAPY
     Route: 048
  4. REYATAZ [Suspect]
     Indication: ANTIRETROVIRAL THERAPY
     Dates: start: 20090301

REACTIONS (1)
  - ABORTION SPONTANEOUS [None]
